FAERS Safety Report 4312247-3 (Version None)
Quarter: 2004Q1

REPORT INFORMATION
  Report Type: 
  Country: None (occurrence: None)
  Receive Date: 20040304
  Receipt Date: 20040304
  Transmission Date: 20041129
  Serious: Yes (Hospitalization)
  Sender: FDA-Public Use
  Company Number: None

PATIENT
  Age: 58 Year
  Sex: Male
  Weight: 71.5 kg

DRUGS (3)
  1. CISPLATIN [Suspect]
     Indication: OESOPHAGEAL CANCER METASTATIC
     Dosage: 30MG/M2 DAYS 1 AND 8 IV
     Route: 042
     Dates: start: 20040206, end: 20040213
  2. IRINOTECAN [Suspect]
     Indication: OESOPHAGEAL CANCER METASTATIC
     Dosage: 65MG/M2 DAYS 1 AND 8 IV
     Route: 042
     Dates: start: 20040206, end: 20040213
  3. FLUOROURACIL [Suspect]
     Indication: OESOPHAGEAL CANCER METASTATIC
     Dosage: 260 MG /M2 DAYS 1-14 IV
     Route: 042
     Dates: start: 20040206, end: 20040220

REACTIONS (2)
  - DEHYDRATION [None]
  - FEBRILE NEUTROPENIA [None]
